FAERS Safety Report 23409313 (Version 1)
Quarter: 2024Q1

REPORT INFORMATION
  Report Type: Spontaneous
  Country: US (occurrence: None)
  Receive Date: 20240115
  Receipt Date: 20240115
  Transmission Date: 20240409
  Serious: Yes (Death)
  Sender: FDA-Public Use
  Company Number: None

PATIENT
  Age: 76 Year
  Sex: Male
  Weight: 42.75 kg

DRUGS (7)
  1. REVLIMID [Suspect]
     Active Substance: LENALIDOMIDE
     Indication: Plasma cell myeloma
     Dosage: 10 MG EVERY OTHER DAY ORAL
     Route: 048
     Dates: start: 20220413, end: 20230926
  2. AZILECT [Concomitant]
     Dates: start: 20170202
  3. CARBIDOPA/LEVODOPA [Concomitant]
     Dates: start: 20170202
  4. Neupro 6mg/24 hr TD Patch [Concomitant]
     Dates: start: 20170202
  5. Aspirin 81 mg ec tablets [Concomitant]
     Dates: start: 20180322
  6. SIMVASTATIN [Concomitant]
     Dates: start: 20200820
  7. PANTOPRAZOLE [Concomitant]
     Dates: start: 20230224

REACTIONS (1)
  - Death [None]

NARRATIVE: CASE EVENT DATE: 20231118
